FAERS Safety Report 4927353-X (Version None)
Quarter: 2006Q1

REPORT INFORMATION
  Report Type: 
  Country: None (occurrence: None)
  Receive Date: 20060228
  Receipt Date: 20050914
  Transmission Date: 20060701
  Serious: Yes (Hospitalization, Other)
  Sender: FDA-Public Use
  Company Number: US-GLAXOSMITHKLINE-A0574256A

PATIENT
  Age: 55 Year
  Sex: Female

DRUGS (1)
  1. IMITREX [Suspect]
     Indication: MIGRAINE
     Route: 065

REACTIONS (4)
  - APHASIA [None]
  - HOT FLUSH [None]
  - HYPERSENSITIVITY [None]
  - PHARYNGEAL OEDEMA [None]
